FAERS Safety Report 14677441 (Version 1)
Quarter: 2018Q1

REPORT INFORMATION
  Report Type: Spontaneous
  Country: IT (occurrence: IT)
  Receive Date: 20180325
  Receipt Date: 20180325
  Transmission Date: 20180509
  Serious: Yes (Hospitalization)
  Sender: FDA-Public Use
  Company Number: IT-MYLANLABS-2018M1017340

PATIENT
  Age: 80 Year
  Sex: Female

DRUGS (1)
  1. BRUFEN [Suspect]
     Active Substance: IBUPROFEN
     Indication: MUSCULOSKELETAL PAIN
     Dosage: 2 DF, QD
     Route: 048

REACTIONS (3)
  - Melaena [Unknown]
  - Tachycardia [Unknown]
  - Presyncope [Unknown]

NARRATIVE: CASE EVENT DATE: 20170405
